FAERS Safety Report 4827186-9 (Version None)
Quarter: 2005Q4

REPORT INFORMATION
  Report Type: 
  Country: None (occurrence: None)
  Receive Date: 20051014
  Receipt Date: 20050802
  Transmission Date: 20060501
  Serious: No
  Sender: FDA-Public Use
  Company Number: 2005SP002195

PATIENT
  Age: 49 Year
  Sex: Female
  Weight: 68.0396 kg

DRUGS (4)
  1. LUNESTA [Suspect]
     Indication: INSOMNIA
     Dosage: 1 MG;1X;ORAL
     Route: 048
     Dates: start: 20050701, end: 20050701
  2. WELLBUTRIN [Concomitant]
  3. ALLEGRA [Concomitant]
  4. ALCOHOL [Concomitant]

REACTIONS (1)
  - HALLUCINATION [None]
